FAERS Safety Report 7063549-1 (Version None)
Quarter: 2010Q4

REPORT INFORMATION
  Report Type: 
  Country: None (occurrence: None)
  Receive Date: 20101026
  Receipt Date: 20100610
  Transmission Date: 20110411
  Serious: No
  Sender: FDA-Public Use
  Company Number: US-ABBOTT-10P-163-0651851-00

PATIENT
  Sex: Female

DRUGS (5)
  1. LUPRON DEPOT [Suspect]
     Indication: ENDOMETRIOSIS
     Dates: start: 20100528
  2. AGESTYN [Suspect]
     Indication: HOT FLUSH
     Dates: start: 20100501, end: 20100610
  3. AGESTYN [Suspect]
     Indication: PROPHYLAXIS
  4. UNKNOWN IRON SUPPLEMENT [Concomitant]
     Indication: MINERAL SUPPLEMENTATION
  5. UNKNOWN VITAMIN [Concomitant]
     Indication: PRODUCT USED FOR UNKNOWN INDICATION

REACTIONS (2)
  - DIZZINESS [None]
  - URTICARIA [None]
